FAERS Safety Report 8031819-6 (Version None)
Quarter: 2012Q1

REPORT INFORMATION
  Report Type: 
  Country: None (occurrence: None)
  Receive Date: 20120109
  Receipt Date: 20120103
  Transmission Date: 20120608
  Serious: Yes (Death)
  Sender: FDA-Public Use
  Company Number: US-ROXANE LABORATORIES, INC.-2012-RO-00238RO

PATIENT
  Age: 59 Year
  Sex: Male

DRUGS (1)
  1. METHADONE HCL [Suspect]

REACTIONS (3)
  - INFECTIOUS PERITONITIS [None]
  - CHOLECYSTITIS ACUTE [None]
  - TOXICITY TO VARIOUS AGENTS [None]
